FAERS Safety Report 4620001-8 (Version None)
Quarter: 2005Q1

REPORT INFORMATION
  Report Type: 
  Country: None (occurrence: None)
  Receive Date: 20050328
  Receipt Date: 20050316
  Transmission Date: 20050727
  Serious: Yes (Hospitalization)
  Sender: FDA-Public Use
  Company Number: FR-BRISTOL-MYERS SQUIBB COMPANY-12901815

PATIENT
  Age: 45 Year
  Sex: Male
  Weight: 66 kg

DRUGS (3)
  1. REYATAZ [Suspect]
     Dosage: THERAPY STOPPED ON 28-JAN-2005 AND RE-STARTED ON 11-FEB-2005.
     Route: 048
     Dates: start: 20041125, end: 20050214
  2. NORVIR [Suspect]
     Dosage: THERAPY STOPPED ON 28-JAN-2005 AND RE-STARTED ON 11-FEB-2005.
     Dates: start: 20041125, end: 20050214
  3. TELZIR [Suspect]
     Dosage: THERAPY STOPPED ON 28-JAN-2005 AND RE-STARTED ON 11-FEB-2005.
     Dates: start: 20041125, end: 20050214

REACTIONS (3)
  - BLOOD ALKALINE PHOSPHATASE INCREASED [None]
  - GAMMA-GLUTAMYLTRANSFERASE INCREASED [None]
  - HEPATIC ENZYME INCREASED [None]
